FAERS Safety Report 16776884 (Version 1)
Quarter: 2019Q4

REPORT INFORMATION
  Report Type: Spontaneous
  Country: US (occurrence: US)
  Receive Date: 20190905
  Receipt Date: 20190905
  Transmission Date: 20200122
  Serious: No
  Sender: FDA-Public Use
  Company Number: None

PATIENT
  Sex: Female

DRUGS (2)
  1. OLMESARTAN-AMLODIPINE-HYDROCHLOROTHIAZIDE 40-10-25 [Suspect]
     Active Substance: AMLODIPINE\HYDROCHLOROTHIAZIDE\OLMESARTAN
  2. METOPROLOL XL 100MG [Suspect]
     Active Substance: METOPROLOL

REACTIONS (1)
  - Drug ineffective [None]
